FAERS Safety Report 10245847 (Version 1)
Quarter: 2014Q2

REPORT INFORMATION
  Report Type: Spontaneous
  Country: US (occurrence: US)
  Receive Date: 20140619
  Receipt Date: 20140619
  Transmission Date: 20141212
  Serious: No
  Sender: FDA-Public Use
  Company Number: US-BIOGENIDEC-2014BI056625

PATIENT
  Age: 56 Year
  Sex: Female

DRUGS (8)
  1. TECFIDERA [Suspect]
     Indication: MULTIPLE SCLEROSIS
     Route: 048
     Dates: start: 20131119, end: 20131125
  2. TECFIDERA [Suspect]
     Indication: MULTIPLE SCLEROSIS
     Route: 048
     Dates: start: 20131126
  3. LYRICA [Concomitant]
  4. ATORVASTATIN [Concomitant]
  5. BUSPIRONE [Concomitant]
  6. OMEPRAZOLE [Concomitant]
  7. LOVAZA [Concomitant]
  8. SERTRALINE [Concomitant]

REACTIONS (1)
  - Anaemia [Not Recovered/Not Resolved]
